FAERS Safety Report 19581434 (Version 1)
Quarter: 2021Q3

REPORT INFORMATION
  Report Type: Spontaneous
  Country: US (occurrence: US)
  Receive Date: 20210719
  Receipt Date: 20210719
  Transmission Date: 20211014
  Serious: Yes (Hospitalization, Disabling)
  Sender: FDA-Public Use
  Company Number: None

PATIENT
  Age: 57 Year
  Sex: Female

DRUGS (1)
  1. COSENTYX [Suspect]
     Active Substance: SECUKINUMAB
     Indication: RHEUMATOID ARTHRITIS
     Dosage: OTHER STRENGTH:150MG/ML;OTHER FREQUENCY:WKLY FOR 5 W;Q4WK ;?THEN Q 4 WEE
     Route: 058
     Dates: start: 20210327, end: 202104

REACTIONS (1)
  - Infection [None]

NARRATIVE: CASE EVENT DATE: 202104
